FAERS Safety Report 8478846-2 (Version None)
Quarter: 2012Q2

REPORT INFORMATION
  Report Type: 
  Country: None (occurrence: None)
  Receive Date: 20120629
  Receipt Date: 20120618
  Transmission Date: 20120825
  Serious: Yes (Hospitalization)
  Sender: FDA-Public Use
  Company Number: BE-JNJFOC-20120600144

PATIENT
  Age: 27 Year
  Sex: Male
  Weight: 69.9 kg

DRUGS (4)
  1. DARUNAVIR ETHANOLATE [Suspect]
     Indication: HIV INFECTION
     Dosage: LAST TAKEN ON 20-MAY-2012
     Route: 048
     Dates: start: 20110129
  2. ECSTASY [Suspect]
     Indication: SUBSTANCE USE
     Route: 065
  3. ISENTRESS [Suspect]
     Indication: HIV INFECTION
     Dosage: LAST TAKEN ON 20-MAY-2012
     Route: 048
     Dates: start: 20110629
  4. NORVIR [Suspect]
     Indication: HIV INFECTION
     Dosage: LAST TAKEN ON 20-MAY-2012
     Route: 048
     Dates: start: 20110129

REACTIONS (1)
  - RHABDOMYOLYSIS [None]
